FAERS Safety Report 10149476 (Version 1)
Quarter: 2014Q2

REPORT INFORMATION
  Report Type: Spontaneous
  Country: US (occurrence: None)
  Receive Date: 20140430
  Receipt Date: 20140430
  Transmission Date: 20141212
  Serious: Yes (Other)
  Sender: FDA-Public Use
  Company Number: ADE14-012

PATIENT
  Age: 67 Year
  Sex: Male

DRUGS (13)
  1. ROCURONIUM BROMIDE [Suspect]
     Indication: INGUINAL HERNIA REPAIR
     Route: 042
     Dates: start: 20140418, end: 20140418
  2. SEVOFLURANE [Concomitant]
  3. FENTANYL [Concomitant]
  4. PHENYLPHRINE [Concomitant]
  5. CEFAZOLIN [Concomitant]
  6. LIDOCAINE [Concomitant]
  7. PROPFOL [Concomitant]
  8. ONDANSETRON [Concomitant]
  9. SUCCINYLCHOLINE [Concomitant]
  10. ACETAMINOPHEN [Concomitant]
  11. NEOSTIGMINE [Concomitant]
  12. GLYCOPYRROLATE [Concomitant]
  13. LACTATED RINGERS [Concomitant]

REACTIONS (1)
  - Drug ineffective [None]
